FAERS Safety Report 5339157-7 (Version None)
Quarter: 2007Q2

REPORT INFORMATION
  Report Type: 
  Country: None (occurrence: None)
  Receive Date: 20070530
  Receipt Date: 20070524
  Transmission Date: 20071010
  Serious: Yes (Hospitalization)
  Sender: FDA-Public Use
  Company Number: US-BOEHRINGER INGELHEIM PHARMACEUTICALS, INC.-2007-BP-06457BP

PATIENT
  Age: 60 Year
  Sex: Female
  Weight: 59 kg

DRUGS (3)
  1. SPIRIVA [Suspect]
     Indication: CHRONIC OBSTRUCTIVE PULMONARY DISEASE
  2. SPIRIVA [Suspect]
     Indication: BRONCHIECTASIS
  3. ADVAIR DISKUS 100/50 [Concomitant]

REACTIONS (2)
  - DYSPHONIA [None]
  - PHARYNGOLARYNGEAL PAIN [None]
